FAERS Safety Report 5914997-1 (Version None)
Quarter: 2008Q4

REPORT INFORMATION
  Report Type: 
  Country: None (occurrence: None)
  Receive Date: 20081010
  Receipt Date: 20080925
  Transmission Date: 20090506
  Serious: Yes (Hospitalization)
  Sender: FDA-Public Use
  Company Number: IT-GENENTECH-268671

PATIENT
  Age: 55 Year
  Sex: Male

DRUGS (3)
  1. RAPTIVA [Suspect]
     Indication: PSORIASIS
     Dosage: 1 MG/KG, 1/WEEK
     Route: 058
     Dates: start: 20051101, end: 20060101
  2. RAPTIVA [Suspect]
     Dosage: 1 MG/KG, 1/WEEK
     Route: 058
     Dates: start: 20060601, end: 20080901
  3. DIOVAN HCT [Concomitant]
     Indication: HYPERTENSION
     Dosage: 160 A?G, QD

REACTIONS (3)
  - ARTHRALGIA [None]
  - ISCHAEMIC STROKE [None]
  - VOMITING [None]
